FAERS Safety Report 20629052 (Version 3)
Quarter: 2022Q2

REPORT INFORMATION
  Report Type: Spontaneous
  Country: DE (occurrence: DE)
  Receive Date: 20220323
  Receipt Date: 20220506
  Transmission Date: 20220721
  Serious: Yes (Other)
  Sender: FDA-Public Use
  Company Number: DE-NOVARTISPH-NVSC2022DE063733

PATIENT
  Sex: Female
  Weight: 43 kg

DRUGS (2)
  1. COSENTYX [Suspect]
     Active Substance: SECUKINUMAB
     Indication: Psoriasis
     Dosage: 300 MG, QMO
     Route: 058
     Dates: start: 20200207
  2. ETORICOXIB [Suspect]
     Active Substance: ETORICOXIB
     Indication: Psoriasis
     Dosage: 60 MG, QD
     Route: 048
     Dates: start: 20210817

REACTIONS (12)
  - Aortic arteriosclerosis [Not Recovered/Not Resolved]
  - Hepatitis E [Not Recovered/Not Resolved]
  - Decreased appetite [Not Recovered/Not Resolved]
  - Nausea [Not Recovered/Not Resolved]
  - Weight decreased [Not Recovered/Not Resolved]
  - Gamma-glutamyltransferase increased [Not Recovered/Not Resolved]
  - Faecaloma [Recovered/Resolved]
  - Terminal ileitis [Recovered/Resolved]
  - Food poisoning [Unknown]
  - Gastroenteritis [Recovered/Resolved]
  - Gastritis [Recovered/Resolved]
  - Duodenitis [Recovered/Resolved]

NARRATIVE: CASE EVENT DATE: 20220113
